FAERS Safety Report 7199090-5 (Version None)
Quarter: 2010Q4

REPORT INFORMATION
  Report Type: 
  Country: None (occurrence: None)
  Receive Date: 20101124
  Receipt Date: 20100915
  Transmission Date: 20110411
  Serious: Yes (Other)
  Sender: FDA-Public Use
  Company Number: 018950

PATIENT
  Sex: Male

DRUGS (8)
  1. LACOSAMIDE [Suspect]
     Dosage: (100 MG QD ORAL)
     Route: 048
     Dates: start: 20100501
  2. SABRIL [Suspect]
     Indication: COMPLEX PARTIAL SEIZURES
     Dosage: (500 MG QD) ; (250 MG QD ORAL)
     Route: 048
     Dates: start: 20100828, end: 20100905
  3. SABRIL [Suspect]
     Indication: COMPLEX PARTIAL SEIZURES
     Dosage: (500 MG QD) ; (250 MG QD ORAL)
     Route: 048
     Dates: start: 20100905
  4. PHENOBARBITAL [Concomitant]
  5. LAMICTAL [Concomitant]
  6. LEXAPRO [Concomitant]
  7. DILANTIN [Concomitant]
  8. TRANXENE [Concomitant]

REACTIONS (4)
  - BALANCE DISORDER [None]
  - GAIT DISTURBANCE [None]
  - TREMOR [None]
  - VISION BLURRED [None]
